FAERS Safety Report 5245295-X (Version None)
Quarter: 2007Q1

REPORT INFORMATION
  Report Type: 
  Country: None (occurrence: None)
  Receive Date: 20070223
  Receipt Date: 20070222
  Transmission Date: 20070707
  Serious: Yes (Hospitalization)
  Sender: FDA-Public Use
  Company Number: US-GLAXOSMITHKLINE-A0640475A

PATIENT
  Sex: Female

DRUGS (1)
  1. AVANDIA [Suspect]
     Indication: DRUG USE FOR UNKNOWN INDICATION
     Route: 048

REACTIONS (5)
  - DYSPNOEA [None]
  - LOSS OF CONSCIOUSNESS [None]
  - LUNG INJURY [None]
  - OXYGEN SATURATION DECREASED [None]
  - WEIGHT INCREASED [None]
